FAERS Safety Report 11512125 (Version 1)
Quarter: 2015Q3

REPORT INFORMATION
  Report Type: Spontaneous
  Country: US (occurrence: US)
  Receive Date: 20150916
  Receipt Date: 20150916
  Transmission Date: 20151125
  Serious: No
  Sender: FDA-Public Use
  Company Number: US-ASTRAZENECA-2015SE86905

PATIENT
  Age: 799 Month
  Sex: Female
  Weight: 117.5 kg

DRUGS (10)
  1. GABAPENTIN. [Concomitant]
     Active Substance: GABAPENTIN
  2. NIFEDIPINE. [Concomitant]
     Active Substance: NIFEDIPINE
  3. RAMIPRIL. [Concomitant]
     Active Substance: RAMIPRIL
  4. MULTIVITAMIN [Concomitant]
     Active Substance: VITAMINS
  5. BYETTA [Suspect]
     Active Substance: EXENATIDE
     Indication: TYPE 2 DIABETES MELLITUS
     Route: 058
     Dates: start: 201508
  6. METFORMIN [Suspect]
     Active Substance: METFORMIN HYDROCHLORIDE
     Dosage: NON AZ PRODUCT
     Route: 065
  7. SPIRONOLACTONE. [Concomitant]
     Active Substance: SPIRONOLACTONE
  8. TIZANIDINE. [Concomitant]
     Active Substance: TIZANIDINE
  9. TORSEMIDE. [Concomitant]
     Active Substance: TORSEMIDE
  10. IRON [Concomitant]
     Active Substance: IRON

REACTIONS (3)
  - Nausea [Recovered/Resolved]
  - Blood glucose increased [Unknown]
  - Decreased appetite [Unknown]

NARRATIVE: CASE EVENT DATE: 201508
